FAERS Safety Report 6247103-7 (Version None)
Quarter: 2009Q2

REPORT INFORMATION
  Report Type: 
  Country: None (occurrence: None)
  Receive Date: 20090626
  Receipt Date: 20090616
  Transmission Date: 20091009
  Serious: Yes (Hospitalization)
  Sender: FDA-Public Use
  Company Number: PHHY2009GB24119

PATIENT
  Age: 43 Year
  Sex: Female

DRUGS (10)
  1. PAMIDRONATE DISODIUM [Suspect]
  2. HUMIRA [Suspect]
     Indication: PSORIATIC ARTHROPATHY
     Dosage: 40 MG, BIW
     Route: 058
     Dates: start: 20060315
  3. AMITRIPTYLINE HCL [Concomitant]
     Route: 065
  4. FELODIPINE [Concomitant]
     Route: 065
  5. INDOMETHACIN [Concomitant]
     Route: 065
  6. LANSOPRAZOLE [Concomitant]
     Route: 065
  7. LOSARTAN POTASSIUM [Concomitant]
     Route: 065
  8. METHOTREXATE [Concomitant]
     Route: 065
  9. TRAMADOL HCL [Concomitant]
     Route: 065
  10. DOXAZOSIN MESYLATE [Concomitant]
     Route: 065

REACTIONS (3)
  - CONVULSION [None]
  - PSORIASIS [None]
  - SUICIDAL IDEATION [None]
